FAERS Safety Report 19985527 (Version 1)
Quarter: 2021Q4

REPORT INFORMATION
  Report Type: Spontaneous
  Country: GB (occurrence: GB)
  Receive Date: 20211022
  Receipt Date: 20211022
  Transmission Date: 20220303
  Serious: Yes (Other)
  Sender: FDA-Public Use
  Company Number: None

PATIENT
  Age: 66 Year
  Sex: Female
  Weight: 67.58 kg

DRUGS (8)
  1. BISOPROLOL FUMARATE [Suspect]
     Active Substance: BISOPROLOL FUMARATE
     Indication: Myocardial infarction
     Dosage: 2.5P
     Route: 065
  2. ASPIRIN [Concomitant]
     Active Substance: ASPIRIN
     Indication: Ill-defined disorder
     Dosage: UNK
     Route: 065
  3. CALCICARE D3 [Concomitant]
     Indication: Ill-defined disorder
     Dosage: UNK
     Route: 065
  4. POTASSIUM BICARBONATE\SODIUM ALGINATE [Concomitant]
     Active Substance: POTASSIUM BICARBONATE\SODIUM ALGINATE
     Indication: Ill-defined disorder
     Dosage: UNK
     Route: 065
  5. LANSOPRAZOLE [Concomitant]
     Active Substance: LANSOPRAZOLE
     Indication: Ill-defined disorder
     Dosage: UNK
     Route: 065
  6. PAROXETIN AMNEAL [Concomitant]
     Indication: Ill-defined disorder
     Dosage: UNK
     Route: 065
  7. VITAMIN B3 [Concomitant]
     Active Substance: NIACIN
     Indication: Ill-defined disorder
     Dosage: UNK
     Route: 065
  8. VITAMIN C [Concomitant]
     Active Substance: ASCORBIC ACID
     Indication: Ill-defined disorder
     Dosage: UNK
     Route: 065

REACTIONS (3)
  - Night sweats [Unknown]
  - Nightmare [Unknown]
  - Fatigue [Unknown]
